FAERS Safety Report 4892730-2 (Version None)
Quarter: 2006Q1

REPORT INFORMATION
  Report Type: 
  Country: None (occurrence: None)
  Receive Date: 20060125
  Receipt Date: 20060125
  Transmission Date: 20060701
  Serious: Yes (Hospitalization)
  Sender: FDA-Public Use
  Company Number: None

PATIENT
  Sex: Male
  Weight: 70 kg

DRUGS (10)
  1. CEFEPIME [Suspect]
     Indication: PNEUMONIA
     Dosage: 2GM  IV  Q12 HOURS
     Route: 042
     Dates: start: 20050814, end: 20050824
  2. IBUPROFEN [Concomitant]
  3. SENNA [Concomitant]
  4. APAP TAB [Concomitant]
  5. MOM [Concomitant]
  6. NYSTATIN [Concomitant]
  7. MAGNESSIUM OXIDE [Concomitant]
  8. CHLORHEXIDINE GLUCONATE [Concomitant]
  9. ENOXAPARIN SODIUM [Concomitant]
  10. CLONIDINE [Concomitant]

REACTIONS (1)
  - WHITE BLOOD CELL COUNT DECREASED [None]
